FAERS Safety Report 11664490 (Version 1)
Quarter: 2015Q4

REPORT INFORMATION
  Report Type: Spontaneous
  Country: US (occurrence: US)
  Receive Date: 20151027
  Receipt Date: 20151027
  Transmission Date: 20160304
  Serious: Yes (Other)
  Sender: FDA-Public Use
  Company Number: US-TORRENT-00000965

PATIENT
  Sex: Female

DRUGS (1)
  1. VALSARTAN- VALSARTAN TABLET [Suspect]
     Active Substance: VALSARTAN
     Indication: HYPERTENSION
     Dosage: ONCE A DAY

REACTIONS (1)
  - Abdominal pain upper [Unknown]
